FAERS Safety Report 9853167 (Version 1)
Quarter: 2014Q1

REPORT INFORMATION
  Report Type: Spontaneous
  Country: US (occurrence: None)
  Receive Date: 20140128
  Receipt Date: 20140128
  Transmission Date: 20141002
  Serious: Yes (Life-Threatening)
  Sender: FDA-Public Use
  Company Number: None

PATIENT
  Sex: Male

DRUGS (1)
  1. TOPOMAX [Suspect]
     Indication: CONVULSION
     Dosage: 2 TABS IN AM, 1 TAB @ NIGHT

REACTIONS (2)
  - Product substitution issue [None]
  - Convulsion [None]
